FAERS Safety Report 6486937-0 (Version None)
Quarter: 2009Q4

REPORT INFORMATION
  Report Type: 
  Country: None (occurrence: None)
  Receive Date: 20091209
  Receipt Date: 20091209
  Transmission Date: 20100525
  Serious: Yes (Life-Threatening, Hospitalization)
  Sender: FDA-Public Use
  Company Number: None

PATIENT
  Age: 9 Year
  Sex: Female

DRUGS (3)
  1. RITUXIMAB 375 MG/M2 [Suspect]
     Indication: ACUTE LYMPHOCYTIC LEUKAEMIA
     Dosage: 375 MG/M2 X 2 ON DAYS 1 + 3 IV
     Route: 042
     Dates: start: 20091001, end: 20091022
  2. METHOTREXATE [Suspect]
     Indication: ACUTE LYMPHOCYTIC LEUKAEMIA
     Dosage: 15 MG X1 ON DAY 3 IT
     Route: 037
     Dates: start: 20091001, end: 20091022
  3. CYTARABINE [Suspect]
     Indication: ACUTE LYMPHOCYTIC LEUKAEMIA
     Dosage: 30 MG X 1 ON DAY 3 IT
     Route: 037
     Dates: start: 20091001, end: 20091022

REACTIONS (4)
  - DERMATITIS BULLOUS [None]
  - HYPOAESTHESIA [None]
  - MYELITIS TRANSVERSE [None]
  - PARAPARESIS [None]
